FAERS Safety Report 9694163 (Version 2)
Quarter: 2013Q4

REPORT INFORMATION
  Report Type: Spontaneous
  Country: US (occurrence: US)
  Receive Date: 20131118
  Receipt Date: 20131126
  Transmission Date: 20140711
  Serious: Yes (Other)
  Sender: FDA-Public Use
  Company Number: US-009507513-1311USA005509

PATIENT
  Age: 68 Year
  Sex: Male

DRUGS (1)
  1. SINGULAIR [Suspect]
     Indication: ASTHMA
     Route: 048

REACTIONS (6)
  - Depression [Unknown]
  - Initial insomnia [Unknown]
  - Muscle spasms [Unknown]
  - Nightmare [Unknown]
  - Palpitations [Unknown]
  - Poor quality sleep [Unknown]
